FAERS Safety Report 14844768 (Version 7)
Quarter: 2019Q4

REPORT INFORMATION
  Report Type: Report from Study
  Country: CA (occurrence: CA)
  Receive Date: 20180504
  Receipt Date: 20191210
  Transmission Date: 20200122
  Serious: Yes (Life-Threatening, Other)
  Sender: FDA-Public Use
  Company Number: CA-BRISTOL-MYERS SQUIBB COMPANY-BMS-2018-013297

PATIENT
  Age: 67 Year
  Sex: Female

DRUGS (1)
  1. ABATACEPT [Suspect]
     Active Substance: ABATACEPT
     Indication: ARTHRITIS
     Dosage: 500 MILLIGRAM, Q4WK
     Route: 042
     Dates: start: 20140423

REACTIONS (13)
  - Sinus congestion [Unknown]
  - Influenza [Not Recovered/Not Resolved]
  - Fall [Unknown]
  - Swelling [Unknown]
  - Tension headache [Recovered/Resolved]
  - Blood pressure increased [Unknown]
  - Loss of consciousness [Unknown]
  - Dyspnoea [Unknown]
  - Nasopharyngitis [Unknown]
  - Oropharyngeal pain [Recovering/Resolving]
  - Headache [Recovered/Resolved]
  - Tremor [Unknown]
  - Dizziness [Unknown]

NARRATIVE: CASE EVENT DATE: 20180208
